FAERS Safety Report 14455552 (Version 3)
Quarter: 2018Q2

REPORT INFORMATION
  Report Type: Spontaneous
  Country: US (occurrence: US)
  Receive Date: 20180129
  Receipt Date: 20180601
  Transmission Date: 20180711
  Serious: No
  Sender: FDA-Public Use
  Company Number: US-009507513-1801USA010561

PATIENT
  Age: 32 Year
  Sex: Female
  Weight: 56.2 kg

DRUGS (3)
  1. FLEXERIL [Concomitant]
     Active Substance: CYCLOBENZAPRINE HYDROCHLORIDE
     Indication: ADNEXA UTERI PAIN
     Dosage: 10 MG, PRN
     Route: 048
     Dates: start: 20170927, end: 20171010
  2. ADVIL [Concomitant]
     Active Substance: IBUPROFEN
     Indication: MIGRAINE
     Dosage: 400 MG, AS REQUIRED
     Route: 048
     Dates: start: 1996
  3. MAXALT [Suspect]
     Active Substance: RIZATRIPTAN BENZOATE
     Indication: MIGRAINE
     Dosage: 10 MG, AS REQUIRED
     Route: 048
     Dates: start: 20170128, end: 2018

REACTIONS (3)
  - Nasopharyngitis [Unknown]
  - Adverse drug reaction [Unknown]
  - Dysfunctional uterine bleeding [Recovered/Resolved]

NARRATIVE: CASE EVENT DATE: 2017
